FAERS Safety Report 24800841 (Version 5)
Quarter: 2025Q1

REPORT INFORMATION
  Report Type: Spontaneous
  Country: AR (occurrence: AR)
  Receive Date: 20250102
  Receipt Date: 20250314
  Transmission Date: 20250409
  Serious: Yes (Other)
  Sender: PFIZER
  Company Number: AR-PFIZER INC-202400320030

PATIENT
  Age: 57 Year
  Sex: Female

DRUGS (5)
  1. IXIFI [Suspect]
     Active Substance: INFLIXIMAB-QBTX
     Indication: Colitis ulcerative
     Route: 042
     Dates: start: 20241114
  2. IXIFI [Suspect]
     Active Substance: INFLIXIMAB-QBTX
     Route: 042
     Dates: start: 20241205
  3. IXIFI [Suspect]
     Active Substance: INFLIXIMAB-QBTX
  4. MEPREDNISONE [Concomitant]
     Active Substance: MEPREDNISONE
     Dosage: 50 MG, DAILY
     Route: 048
  5. MESALAMINE [Concomitant]
     Active Substance: MESALAMINE

REACTIONS (7)
  - Hypokalaemia [Unknown]
  - Cystitis interstitial [Not Recovered/Not Resolved]
  - Condition aggravated [Not Recovered/Not Resolved]
  - Pain [Unknown]
  - Condition aggravated [Unknown]
  - Malaise [Unknown]
  - Off label use [Unknown]

NARRATIVE: CASE EVENT DATE: 20240101
